FAERS Safety Report 8432978-3 (Version None)
Quarter: 2012Q2

REPORT INFORMATION
  Report Type: 
  Country: None (occurrence: None)
  Receive Date: 20120613
  Receipt Date: 20120604
  Transmission Date: 20120825
  Serious: Yes (Other)
  Sender: FDA-Public Use
  Company Number: US-ASTRAZENECA-2012SE37171

PATIENT
  Age: 77 Year
  Sex: Female
  Weight: 63.5 kg

DRUGS (5)
  1. IRON [Concomitant]
  2. NEXIUM [Suspect]
     Route: 048
  3. SERTRALINE HYDROCHLORIDE [Concomitant]
     Dosage: DAILY
  4. NEXIUM [Suspect]
     Indication: GASTROOESOPHAGEAL REFLUX DISEASE
     Route: 048
  5. METHENAMINE TAB [Concomitant]
     Indication: BLADDER DISORDER
     Dosage: DAILY

REACTIONS (4)
  - DYSPHAGIA [None]
  - WEIGHT DECREASED [None]
  - CYSTITIS [None]
  - HAEMATEMESIS [None]
